FAERS Safety Report 4667784-9 (Version None)
Quarter: 2005Q2

REPORT INFORMATION
  Report Type: 
  Country: None (occurrence: None)
  Receive Date: 20050520
  Receipt Date: 20050512
  Transmission Date: 20051028
  Serious: Yes (Death)
  Sender: FDA-Public Use
  Company Number: GB-GLAXOSMITHKLINE-B0380995A

PATIENT
  Age: 52 Year
  Sex: Female

DRUGS (3)
  1. SERETIDE [Suspect]
     Indication: ASTHMA
     Route: 055
  2. TIOTROPIUM [Concomitant]
     Indication: ASTHMA
     Route: 055
  3. UNSPECIFIED MEDICATION [Concomitant]
     Indication: ASTHMA

REACTIONS (1)
  - DEATH [None]
